FAERS Safety Report 18048854 (Version 3)
Quarter: 2020Q3

REPORT INFORMATION
  Report Type: Report from Study
  Country: PL (occurrence: PL)
  Receive Date: 20200721
  Receipt Date: 20200824
  Transmission Date: 20201103
  Serious: Yes (Hospitalization)
  Sender: FDA-Public Use
  Company Number: NVSC2020PL179377

PATIENT
  Age: 29 Year
  Sex: Male
  Weight: 69.9 kg

DRUGS (5)
  1. SECUKINUMAB. [Suspect]
     Active Substance: SECUKINUMAB
     Indication: AXIAL SPONDYLOARTHRITIS
     Dosage: 150 MG, LOAD
     Route: 058
     Dates: start: 20180514, end: 20200513
  2. XIFAXAN [Concomitant]
     Active Substance: RIFAXIMIN
     Indication: DIARRHOEA
     Dosage: 400 MG, BID
     Route: 048
     Dates: start: 20200522
  3. METRONIDAZOLE. [Concomitant]
     Active Substance: METRONIDAZOLE
     Indication: DIARRHOEA
     Dosage: 500 MG, TID
     Route: 048
     Dates: start: 20200516
  4. DEBRETIN [Concomitant]
     Indication: DIARRHOEA
     Dosage: 1 TAB TID
     Route: 048
     Dates: start: 20200522
  5. ULGASTRAN [Concomitant]
     Indication: DIARRHOEA
     Dosage: 5 ML, TID
     Route: 048
     Dates: start: 20200522

REACTIONS (6)
  - Sepsis [Recovered/Resolved]
  - Liver injury [Unknown]
  - Hyperalbuminaemia [Unknown]
  - Electrolyte imbalance [Unknown]
  - Crohn^s disease [Recovered/Resolved with Sequelae]
  - Diarrhoea [Unknown]

NARRATIVE: CASE EVENT DATE: 20200528
